FAERS Safety Report 5339605-2 (Version None)
Quarter: 2007Q2

REPORT INFORMATION
  Report Type: 
  Country: None (occurrence: None)
  Receive Date: 20070525
  Receipt Date: 20070425
  Transmission Date: 20071010
  Serious: Yes (Other)
  Sender: FDA-Public Use
  Company Number: 2007SP009832

PATIENT
  Age: 74 Year
  Sex: Female
  Weight: 54.4316 kg

DRUGS (4)
  1. MIRALAX [Suspect]
     Indication: CONSTIPATION
     Dosage: 1 DF; QD; PO
     Route: 048
     Dates: start: 20070415, end: 20070421
  2. MILK OF MAGNESIA [Concomitant]
  3. EX-LAX  /00142201/ [Concomitant]
  4. LAXATIVES [Concomitant]

REACTIONS (5)
  - ABDOMINAL DISTENSION [None]
  - DRUG EFFECT DECREASED [None]
  - FLATULENCE [None]
  - HAEMORRHOIDAL HAEMORRHAGE [None]
  - MUSCLE SPASMS [None]
